FAERS Safety Report 20020398 (Version 1)
Quarter: 2021Q4

REPORT INFORMATION
  Report Type: Spontaneous
  Country: CA (occurrence: CA)
  Receive Date: 20211101
  Receipt Date: 20211101
  Transmission Date: 20220303
  Serious: Yes (Other)
  Sender: FDA-Public Use
  Company Number: CA-UCBSA-2021050342

PATIENT
  Age: 3 Year
  Sex: Male

DRUGS (5)
  1. LEVETIRACETAM [Suspect]
     Active Substance: LEVETIRACETAM
     Indication: Seizure
     Dosage: UNKNOWN DOSE
  2. CLOBAZAM [Suspect]
     Active Substance: CLOBAZAM
     Indication: Seizure
     Dosage: UNKNOWN DOSE
  3. ETHOSUXIMIDE [Suspect]
     Active Substance: ETHOSUXIMIDE
     Indication: Seizure
  4. RUFINAMIDE [Suspect]
     Active Substance: RUFINAMIDE
     Indication: Seizure
  5. VALPROIC ACID [Suspect]
     Active Substance: VALPROIC ACID
     Indication: Seizure

REACTIONS (3)
  - Petit mal epilepsy [Not Recovered/Not Resolved]
  - Tonic convulsion [Not Recovered/Not Resolved]
  - Multiple-drug resistance [Unknown]
